FAERS Safety Report 10185706 (Version 1)
Quarter: 2014Q2

REPORT INFORMATION
  Report Type: Spontaneous
  Country: DK (occurrence: DK)
  Receive Date: 20140521
  Receipt Date: 20140521
  Transmission Date: 20141212
  Serious: Yes (Death, Hospitalization)
  Sender: FDA-Public Use
  Company Number: DK-WATSON-2014-10080

PATIENT
  Age: 63 Year
  Sex: Female

DRUGS (4)
  1. METFORMIN ACTAVIS [Suspect]
     Indication: TYPE 2 DIABETES MELLITUS
     Dosage: 1000 MG, TID
     Route: 048
  2. AMILCO [Concomitant]
     Indication: PRODUCT USED FOR UNKNOWN INDICATION
     Dosage: UNK
     Route: 065
  3. FURIX [Concomitant]
     Indication: PRODUCT USED FOR UNKNOWN INDICATION
     Dosage: UNK
     Route: 065
  4. VICTOZA [Concomitant]
     Indication: TYPE 2 DIABETES MELLITUS
     Dosage: UNK
     Route: 065

REACTIONS (12)
  - Lactic acidosis [Fatal]
  - Nephropathy [Fatal]
  - Cardiac arrest [Fatal]
  - Brain injury [Fatal]
  - Abdominal pain [Unknown]
  - Diarrhoea [Unknown]
  - Vomiting [Unknown]
  - Anuria [Unknown]
  - Lethargy [Unknown]
  - Shock [Unknown]
  - Myoclonus [Unknown]
  - Haemodialysis [Unknown]
